FAERS Safety Report 9690496 (Version 3)
Quarter: 2013Q4

REPORT INFORMATION
  Report Type: Spontaneous
  Country: JP (occurrence: None)
  Receive Date: 20131113
  Receipt Date: 20131224
  Transmission Date: 20140711
  Serious: Yes (Other)
  Sender: FDA-Public Use
  Company Number: JP-013546

PATIENT
  Age: 50 Year
  Sex: Male

DRUGS (3)
  1. DEGARELIX [Suspect]
     Indication: PROSTATE CANCER
     Route: 058
     Dates: start: 20131009, end: 20131009
  2. PROSTAL [Suspect]
     Indication: PROSTATE CANCER
     Route: 048
     Dates: start: 20130927, end: 20131029
  3. ANTIHYPERTENSIVES [Concomitant]

REACTIONS (4)
  - Pancytopenia [None]
  - Dyspnoea [None]
  - Anaemia [None]
  - Dyspnoea [None]
